FAERS Safety Report 4721686-8 (Version None)
Quarter: 2005Q3

REPORT INFORMATION
  Report Type: 
  Country: None (occurrence: None)
  Receive Date: 20050721
  Receipt Date: 20050224
  Transmission Date: 20060218
  Serious: Yes (Hospitalization, Other)
  Sender: FDA-Public Use
  Company Number: US-BRISTOL-MYERS SQUIBB COMPANY-12874723

PATIENT
  Age: 76 Year
  Sex: Male
  Weight: 84 kg

DRUGS (4)
  1. COUMADIN [Suspect]
     Indication: THROMBOSIS
     Dosage: ONGOING FOR YEARS
  2. PLAVIX [Concomitant]
     Indication: THROMBOSIS
     Dosage: ENOXAPARIN WAS STOPPED AND STARTED BECAUSE OF MYOCARDIAL INFARCTION
     Dates: start: 20041201
  3. LOVENOX [Suspect]
  4. ASPIRIN [Concomitant]

REACTIONS (3)
  - MUSCLE NECROSIS [None]
  - SKIN ULCER [None]
  - TREMOR [None]
